FAERS Safety Report 19567385 (Version 1)
Quarter: 2021Q3

REPORT INFORMATION
  Report Type: Spontaneous
  Country: US (occurrence: US)
  Receive Date: 20210714
  Receipt Date: 20210714
  Transmission Date: 20211014
  Serious: No
  Sender: FDA-Public Use
  Company Number: US-PFIZER INC-2021576144

PATIENT
  Age: 54 Year

DRUGS (3)
  1. CELEBREX [Suspect]
     Active Substance: CELECOXIB
     Indication: PAIN
     Dosage: 200 MG, AS NEEDED(TAKE 1 CAPSULE BY MOUTH 2 TIMES A DAY AS NEEDED SEVERE PAIN)
     Route: 048
     Dates: start: 20210513, end: 20210701
  2. ARTHROTEC [Suspect]
     Active Substance: DICLOFENAC SODIUM\MISOPROSTOL
     Indication: PAIN
     Dosage: 75 MG, AS NEEDED(TAKE ONE TABLET BY MOUTH TWICE A DAY AS NEEDED FOR SEVERE PAIN)
     Route: 048
  3. IBUPROFEN. [Suspect]
     Active Substance: IBUPROFEN
     Dosage: UNK

REACTIONS (1)
  - Abdominal pain upper [Unknown]
